FAERS Safety Report 4843728-1 (Version None)
Quarter: 2005Q4

REPORT INFORMATION
  Report Type: 
  Country: None (occurrence: None)
  Receive Date: 20051129
  Receipt Date: 20051108
  Transmission Date: 20060501
  Serious: No
  Sender: FDA-Public Use
  Company Number: DE_050916860

PATIENT
  Age: 13 Year
  Sex: Male
  Weight: 84.8226 kg

DRUGS (1)
  1. STRATTERA [Suspect]
     Dosage: 60 MG ORAL
     Route: 048
     Dates: start: 20050101

REACTIONS (2)
  - ASPARTATE AMINOTRANSFERASE INCREASED [None]
  - BLOOD BILIRUBIN INCREASED [None]
